FAERS Safety Report 22265228 (Version 2)
Quarter: 2023Q2

REPORT INFORMATION
  Report Type: Report from Study
  Country: US (occurrence: US)
  Receive Date: 20230428
  Receipt Date: 20230530
  Transmission Date: 20230721
  Serious: Yes (Other)
  Sender: FDA-Public Use
  Company Number: US-ABBVIE-4743861

PATIENT
  Age: 49 Year
  Sex: Female

DRUGS (1)
  1. RINVOQ [Suspect]
     Active Substance: UPADACITINIB
     Indication: Rheumatoid arthritis
     Dosage: FORM STRENGTH: 15 MG
     Route: 048
     Dates: start: 202211

REACTIONS (5)
  - Knee operation [Unknown]
  - Pain [Unknown]
  - Musculoskeletal stiffness [Unknown]
  - Ligament sprain [Unknown]
  - Joint effusion [Unknown]

NARRATIVE: CASE EVENT DATE: 20230401
